FAERS Safety Report 20375837 (Version 5)
Quarter: 2022Q1

REPORT INFORMATION
  Report Type: Spontaneous
  Country: JP (occurrence: JP)
  Receive Date: 20220125
  Receipt Date: 20220325
  Transmission Date: 20220424
  Serious: Yes (Other)
  Sender: FDA-Public Use
  Company Number: JP-ONO-2022JP000566

PATIENT
  Age: 69 Year
  Sex: Male
  Weight: 50 kg

DRUGS (2)
  1. BRAFTOVI [Suspect]
     Active Substance: ENCORAFENIB
     Indication: Colon cancer
     Dosage: 225 MG
     Route: 048
     Dates: start: 20211021
  2. ERBITUX [Suspect]
     Active Substance: CETUXIMAB
     Indication: Colon cancer
     Dosage: UNK, WEEKLY
     Route: 042
     Dates: start: 20211020

REACTIONS (6)
  - Iron deficiency anaemia [Unknown]
  - Second primary malignancy [Not Recovered/Not Resolved]
  - Neoplasm skin [Not Recovered/Not Resolved]
  - Lentigo [Not Recovered/Not Resolved]
  - Eye symptom [Unknown]
  - Pyogenic granuloma [Unknown]

NARRATIVE: CASE EVENT DATE: 20211201
